FAERS Safety Report 10455429 (Version 1)
Quarter: 2014Q3

REPORT INFORMATION
  Report Type: Spontaneous
  Country: US (occurrence: None)
  Receive Date: 20140815
  Receipt Date: 20140815
  Transmission Date: 20150326
  Serious: Yes (Other)
  Sender: FDA-Public Use
  Company Number: FK201400593

PATIENT
  Age: 20 Year
  Sex: Female
  Weight: 95.26 kg

DRUGS (7)
  1. KETAMINE [Suspect]
     Active Substance: KETAMINE
     Indication: INDUCTION AND MAINTENANCE OF ANAESTHESIA
     Route: 042
  2. MIDAZOLAM HCL [Suspect]
     Active Substance: MIDAZOLAM HYDROCHLORIDE
     Indication: INDUCTION AND MAINTENANCE OF ANAESTHESIA
     Dosage: 2 MG, 1 IN 1 TOTAL, INTRAVENOUS
     Route: 042
     Dates: start: 20140214, end: 20140214
  3. PROPOFOL (PROPOFOL) (PROPOFOL) [Concomitant]
  4. PENICILLIN (BENZYLPENICILIN) (BENZYLPENICILLIN) [Concomitant]
  5. FENTANYL (FENTANYL) (FENTANYL) [Suspect]
     Active Substance: FENTANYL
     Indication: INDUCTION AND MAINTENANCE OF ANAESTHESIA
     Route: 042
  6. MEDROL (METHYLPREDNISOLONE) (METHYLPREDNISOLONE) [Concomitant]
  7. DECADRON (DEXAMETHASONE) (DEXAMETHASONE) [Concomitant]

REACTIONS (2)
  - Respiratory arrest [None]
  - Sudden onset of sleep [None]

NARRATIVE: CASE EVENT DATE: 20140214
